FAERS Safety Report 7512735-2 (Version None)
Quarter: 2011Q2

REPORT INFORMATION
  Report Type: 
  Country: None (occurrence: None)
  Receive Date: 20110531
  Receipt Date: 20110513
  Transmission Date: 20111010
  Serious: Yes (Hospitalization)
  Sender: FDA-Public Use
  Company Number: A0784668A

PATIENT
  Age: 46 Year
  Sex: Female
  Weight: 109.1 kg

DRUGS (4)
  1. LOTREL [Concomitant]
  2. GLUCOPHAGE [Concomitant]
  3. CLONIDINE [Concomitant]
  4. AVANDIA [Suspect]
     Indication: DIABETES MELLITUS
     Dosage: 2MG TWICE PER DAY
     Route: 048
     Dates: start: 20040101, end: 20051213

REACTIONS (5)
  - ARTERIOSCLEROSIS CORONARY ARTERY [None]
  - CARDIAC FAILURE CONGESTIVE [None]
  - MYOCARDIAL INFARCTION [None]
  - CARDIOMYOPATHY [None]
  - MYOCARDIAL ISCHAEMIA [None]
